FAERS Safety Report 4478557-4 (Version None)
Quarter: 2004Q4

REPORT INFORMATION
  Report Type: 
  Country: None (occurrence: None)
  Receive Date: 20041019
  Receipt Date: 20030909
  Transmission Date: 20050328
  Serious: Yes (Hospitalization)
  Sender: FDA-Public Use
  Company Number: FR-MERCK-0309FRA00019

PATIENT
  Age: 69 Year
  Sex: Male

DRUGS (7)
  1. COZAAR [Suspect]
     Indication: HYPERTENSION
     Route: 048
     Dates: start: 20030501, end: 20030721
  2. BISOPROLOL FUMARATE [Concomitant]
     Indication: HYPERTENSION
     Route: 048
     Dates: start: 20030708, end: 20030721
  3. DICLOFENAC [Concomitant]
     Indication: ARTHRALGIA
     Route: 048
     Dates: start: 20030717, end: 20030721
  4. DICLOFENAC [Concomitant]
     Indication: PYREXIA
     Route: 048
     Dates: start: 20030717, end: 20030721
  5. ALLOPURINOL [Concomitant]
     Route: 048
  6. AMLODIPINE MALEATE [Concomitant]
     Indication: HYPERTENSION
     Route: 048
     Dates: end: 20030501
  7. PRAVASTATIN SODIUM [Concomitant]
     Route: 048

REACTIONS (11)
  - ARTHRALGIA [None]
  - ASTHENIA [None]
  - ATRIAL FIBRILLATION [None]
  - DYSPNOEA [None]
  - ELECTROCARDIOGRAM REPOLARISATION ABNORMALITY [None]
  - EOSINOPHILIA [None]
  - HYPOXIA [None]
  - MUSCULOSKELETAL STIFFNESS [None]
  - PNEUMONITIS [None]
  - RASH PRURITIC [None]
  - RENAL FAILURE ACUTE [None]
